FAERS Safety Report 24588984 (Version 3)
Quarter: 2024Q4

REPORT INFORMATION
  Report Type: Spontaneous
  Country: CZ (occurrence: CZ)
  Receive Date: 20241107
  Receipt Date: 20241122
  Transmission Date: 20250114
  Serious: Yes (Life-Threatening, Hospitalization, Other)
  Sender: SANOFI AVENTIS
  Company Number: CZ-MLMSERVICE-20241028-PI239053-00224-2

PATIENT
  Age: 67 Year
  Sex: Female
  Weight: 67 kg

DRUGS (21)
  1. MIDAZOLAM [Suspect]
     Active Substance: MIDAZOLAM
     Indication: Sedation
     Dosage: SMALL DOSE
  2. MIDAZOLAM [Suspect]
     Active Substance: MIDAZOLAM
     Indication: Postoperative delirium
     Dosage: SMALL DOSE, CONTINUOUS TITRATED FOR THE NEEDED DEPTH OF SEDATION
     Route: 042
  3. MIDAZOLAM [Suspect]
     Active Substance: MIDAZOLAM
  4. DEXMEDETOMIDINE [Suspect]
     Active Substance: DEXMEDETOMIDINE
     Indication: Sedation
     Dosage: SMALL DOSE
  5. DEXMEDETOMIDINE [Suspect]
     Active Substance: DEXMEDETOMIDINE
     Indication: Postoperative delirium
     Dosage: SMALL DOSE, CONTINUOUS TITRATED FOR THE NEEDED DEPTH OF SEDATION
     Route: 042
  6. DEXMEDETOMIDINE [Suspect]
     Active Substance: DEXMEDETOMIDINE
  7. MELPERONE [Concomitant]
     Active Substance: MELPERONE
     Indication: Postoperative delirium
     Dosage: 25 MG, Q6H (1-1-1-2)
     Route: 048
  8. OLANZAPINE [Concomitant]
     Active Substance: OLANZAPINE
     Indication: Postoperative delirium
     Dosage: 5 MG, Q12H, 0-1-0-1
     Route: 048
  9. DANTROLENE [Concomitant]
     Active Substance: DANTROLENE
     Indication: Neuroleptic malignant syndrome
     Dosage: 2.5 MG/KG BODY WEIGHT
  10. BETAXOLOL [Concomitant]
     Active Substance: BETAXOLOL
     Indication: Hypertension
     Dosage: UNK
  11. DIOSMIN\HESPERIDIN [Concomitant]
     Active Substance: DIOSMIN\HESPERIDIN
     Indication: Varicose vein
     Dosage: UNK
  12. MAGNESIUM SULFATE [Concomitant]
     Active Substance: MAGNESIUM SULFATE
     Indication: Generalised tonic-clonic seizure
     Dosage: 10 ML
     Route: 042
  13. OXYGEN [Concomitant]
     Active Substance: OXYGEN
     Indication: Tremor
     Dosage: LOW-FLOW
  14. OXYGEN [Concomitant]
     Active Substance: OXYGEN
     Indication: Muscle rigidity
  15. TIAPRIDE [Concomitant]
     Active Substance: TIAPRIDE
     Indication: Postoperative delirium
     Dosage: 100 MG 2 TABLETS
     Route: 048
  16. ISOLYTE S [Concomitant]
     Active Substance: MAGNESIUM CHLORIDE\POTASSIUM CHLORIDE\SODIUM ACETATE\SODIUM CHLORIDE\SODIUM GLUCONATE
     Indication: Generalised tonic-clonic seizure
     Dosage: 500 ML + A TOTAL OF 450 ML PHYSIOLOGICAL SOLUTION AS CARRIER MEDIUM
     Route: 042
  17. METAMIZOLE [Concomitant]
     Active Substance: METAMIZOLE
     Indication: Hyperthermia
     Dosage: 1 G
     Route: 042
  18. DIAZEPAM [Concomitant]
     Active Substance: DIAZEPAM
     Indication: Generalised tonic-clonic seizure
     Dosage: 30 MG TITRATED TO A TOTAL DOSE
     Route: 042
  19. BROMAZEPAM [Concomitant]
     Active Substance: BROMAZEPAM
     Indication: Drug abuse
     Dosage: 3 MG, TID (1-1-1)
  20. ALPRAZOLAM [Concomitant]
     Active Substance: ALPRAZOLAM
     Indication: Drug abuse
     Dosage: 1 MG, QD (1 MG 1 TAB. IN THE EVENING)
  21. ZOLPIDEM [Concomitant]
     Active Substance: ZOLPIDEM TARTRATE
     Indication: Drug abuse
     Dosage: 10 MG, HS (2 TABS.)

REACTIONS (1)
  - Hypotension [Recovered/Resolved]
